FAERS Safety Report 8409884-3 (Version None)
Quarter: 2012Q2

REPORT INFORMATION
  Report Type: 
  Country: None (occurrence: None)
  Receive Date: 20120605
  Receipt Date: 20120518
  Transmission Date: 20120825
  Serious: Yes (Other)
  Sender: FDA-Public Use
  Company Number: US-ASTRAZENECA-2011SE27408

PATIENT
  Age: 61 Year
  Sex: Female
  Weight: 83.9 kg

DRUGS (5)
  1. WELLBUTRIN [Concomitant]
  2. NEXIUM [Suspect]
     Indication: GASTROOESOPHAGEAL REFLUX DISEASE
     Route: 048
  3. XANAX [Concomitant]
     Indication: ANXIETY
  4. SEROQUEL [Suspect]
     Indication: BIPOLAR DISORDER
     Route: 048
  5. OMEPRAZOLE [Suspect]
     Route: 048

REACTIONS (14)
  - AMNESIA [None]
  - GASTRIC STENOSIS [None]
  - LYMPHADENOPATHY [None]
  - CARDIAC DISORDER [None]
  - IMPAIRED GASTRIC EMPTYING [None]
  - OESOPHAGEAL ULCER [None]
  - BARRETT'S OESOPHAGUS [None]
  - STRESS [None]
  - MALAISE [None]
  - INTENTIONAL DRUG MISUSE [None]
  - GASTRIC POLYPS [None]
  - TREMOR [None]
  - OESOPHAGEAL DISORDER [None]
  - SOMNOLENCE [None]
